FAERS Safety Report 15470669 (Version 2)
Quarter: 2018Q4

REPORT INFORMATION
  Report Type: Spontaneous
  Country: CA (occurrence: CA)
  Receive Date: 20181005
  Receipt Date: 20181127
  Transmission Date: 20190205
  Serious: Yes (Other)
  Sender: FDA-Public Use
  Company Number: CA-NOVOPROD-624625

PATIENT
  Age: 77 Year
  Sex: Male
  Weight: 118 kg

DRUGS (1)
  1. VICTOZA [Suspect]
     Active Substance: LIRAGLUTIDE
     Indication: DIABETES MELLITUS
     Dosage: UNK
     Route: 065

REACTIONS (6)
  - Hyperthermia [Recovered/Resolved]
  - Rash erythematous [Recovered/Resolved]
  - Polymerase chain reaction positive [Recovered/Resolved]
  - Urticaria [Recovered/Resolved]
  - Hypothermia [Recovered/Resolved]
  - Synovitis [Recovered/Resolved]
